FAERS Safety Report 6841851-3 (Version None)
Quarter: 2010Q3

REPORT INFORMATION
  Report Type: 
  Country: None (occurrence: None)
  Receive Date: 20100714
  Receipt Date: 20070718
  Transmission Date: 20110219
  Serious: No
  Sender: FDA-Public Use
  Company Number: US-PFIZER INC-2007059934

PATIENT
  Sex: Male
  Weight: 77.3 kg

DRUGS (2)
  1. CHANTIX [Suspect]
     Indication: SMOKING CESSATION THERAPY
     Dosage: INTERVAL: EVERY DAY
     Dates: start: 20070712, end: 20070716
  2. TAMSULOSIN HYDROCHLORIDE [Concomitant]
     Dates: start: 20070712

REACTIONS (4)
  - CONSTIPATION [None]
  - INSOMNIA [None]
  - MALAISE [None]
  - NAUSEA [None]
